FAERS Safety Report 17779013 (Version 2)
Quarter: 2020Q3

REPORT INFORMATION
  Report Type: Report from Study
  Country: CA (occurrence: CA)
  Receive Date: 20200513
  Receipt Date: 20200717
  Transmission Date: 20201102
  Serious: Yes (Death, Other)
  Sender: FDA-Public Use
  Company Number: CA-HLS-202000511

PATIENT
  Age: 62 Year
  Sex: Female
  Weight: 70 kg

DRUGS (13)
  1. ATROPINE. [Concomitant]
     Active Substance: ATROPINE
     Dosage: AT BEDTIME?MAY USE 1?2 DROPS EVERY 2?4HRS AS NEEDED
     Route: 060
  2. TECTA [Concomitant]
     Active Substance: PANTOPRAZOLE MAGNESIUM
     Dosage: EVERY MORNING
     Route: 065
  3. VIT D SUPREME 1000 UNIT TABLET [Concomitant]
     Route: 048
  4. SANDOZ FENOFIBRATE [Concomitant]
     Route: 048
  5. APO?ROSUVASTATIN [Concomitant]
     Active Substance: ROSUVASTATIN
     Dosage: NIGHTLY AT BEDTIME
     Route: 048
  6. MYRBETRIQ [Concomitant]
     Active Substance: MIRABEGRON
     Route: 048
  7. EPIVAL OR EQUIVALENT [Concomitant]
     Dosage: EVERY MORNING
     Route: 065
  8. CLOZARIL [Suspect]
     Active Substance: CLOZAPINE
     Indication: SCHIZOPHRENIA
     Dosage: NIGHTLY AT BEDTIME
     Route: 048
     Dates: start: 19991119
  9. SENOKOT OR EQUIVALENT [Concomitant]
     Dosage: AT SUPPERTIME
     Route: 048
  10. SYMBICORT [Concomitant]
     Active Substance: BUDESONIDE\FORMOTEROL FUMARATE DIHYDRATE
     Dosage: 2 INHALATION TWICE DAILY
     Route: 065
  11. SEROQUEL XR [Concomitant]
     Active Substance: QUETIAPINE FUMARATE
     Dosage: EVERY MORNING
     Route: 048
  12. EPIVAL OR EQUIVALENT [Concomitant]
     Dosage: AT BEDTIME
     Route: 048
  13. DULCOCOMFORT [Concomitant]
     Route: 065

REACTIONS (11)
  - Haematocrit decreased [Unknown]
  - Granuloma [Unknown]
  - Respiratory failure [Fatal]
  - Monocyte count increased [Unknown]
  - Haemoglobin decreased [Unknown]
  - Mean cell haemoglobin decreased [Unknown]
  - Pneumonia [Unknown]
  - White blood cell count increased [Unknown]
  - Lymphocyte count increased [Unknown]
  - Neutrophil count increased [Unknown]
  - Pleural effusion [Not Recovered/Not Resolved]

NARRATIVE: CASE EVENT DATE: 2014
